FAERS Safety Report 17465498 (Version 1)
Quarter: 2020Q1

REPORT INFORMATION
  Report Type: Spontaneous
  Country: CH (occurrence: CH)
  Receive Date: 20200227
  Receipt Date: 20200227
  Transmission Date: 20200409
  Serious: Yes (Hospitalization, Other)
  Sender: FDA-Public Use
  Company Number: CH-ROCHE-2396106

PATIENT
  Age: 63 Year
  Sex: Female
  Weight: 64 kg

DRUGS (12)
  1. VALCYTE [Suspect]
     Active Substance: VALGANCICLOVIR HYDROCHLORIDE
     Indication: CYTOMEGALOVIRUS INFECTION
     Dosage: AB DEM 05.08.2019 -11.08.2019 WURDE ERNEUT VALCYTE GEGEBEN
     Route: 048
     Dates: start: 20190711, end: 20190723
  2. PANTOZOL [Concomitant]
     Active Substance: PANTOPRAZOLE SODIUM
     Route: 048
  3. LASIX [Concomitant]
     Active Substance: FUROSEMIDE
     Dosage: 0-80-40-0 MG
     Route: 042
  4. ROCEPHIN [Concomitant]
     Active Substance: CEFTRIAXONE SODIUM
     Route: 042
  5. CELLCEPT [Suspect]
     Active Substance: MYCOPHENOLATE MOFETIL\MYCOPHENOLATE MOFETIL HYDROCHLORIDE
     Indication: HEART TRANSPLANT
     Route: 048
     Dates: start: 2019
  6. DAPSON [Concomitant]
     Active Substance: DAPSONE
     Dosage: 4 TABLETS TWICE A WEEK
     Route: 065
  7. PROGRAF [Concomitant]
     Active Substance: TACROLIMUS
     Route: 065
  8. PREDNISON [Concomitant]
     Active Substance: PREDNISONE
     Route: 048
  9. LEUCOVORINE [Concomitant]
     Active Substance: LEUCOVORIN
     Route: 048
  10. PYRIMETHAMINE [Concomitant]
     Active Substance: PYRIMETHAMINE
     Route: 065
  11. LIQUEMIN [HEPARIN SODIUM] [Concomitant]
     Route: 048
  12. AMPHO MORONAL [Concomitant]
     Active Substance: AMPHOTERICIN B
     Route: 002

REACTIONS (5)
  - Anaemia [Unknown]
  - Pseudomonas infection [Recovering/Resolving]
  - Pancytopenia [Unknown]
  - Gingivitis ulcerative [Recovering/Resolving]
  - Leukopenia [Recovered/Resolved]

NARRATIVE: CASE EVENT DATE: 2019
